FAERS Safety Report 4610946-7 (Version None)
Quarter: 2005Q1

REPORT INFORMATION
  Report Type: 
  Country: None (occurrence: None)
  Receive Date: 20050303
  Receipt Date: 20041025
  Transmission Date: 20050727
  Serious: No
  Sender: FDA-Public Use
  Company Number: 702357

PATIENT
  Age: 70 Year
  Sex: Female
  Weight: 65.7716 kg

DRUGS (1)
  1. AMEVIVE [Suspect]
     Indication: SKIN DISORDER
     Dosage: 15 MG;QW;IM
     Route: 030
     Dates: start: 20041019, end: 20041026

REACTIONS (4)
  - DYSPHONIA [None]
  - OEDEMA PERIPHERAL [None]
  - PRURITUS GENERALISED [None]
  - WEIGHT INCREASED [None]
